FAERS Safety Report 25993604 (Version 1)
Quarter: 2025Q4

REPORT INFORMATION
  Report Type: Spontaneous
  Country: JP (occurrence: JP)
  Receive Date: 20251104
  Receipt Date: 20251104
  Transmission Date: 20260118
  Serious: Yes (Life-Threatening, Hospitalization)
  Sender: MERCK SHARP & DOHME LLC
  Company Number: JP-009507513-2345747

PATIENT
  Age: 65 Year
  Sex: Female
  Weight: 47 kg

DRUGS (9)
  1. KEYTRUDA [Suspect]
     Active Substance: PEMBROLIZUMAB
     Indication: Endometrial cancer
     Route: 041
     Dates: start: 20240702, end: 20250616
  2. LENVIMA [Concomitant]
     Active Substance: LENVATINIB
     Route: 048
     Dates: start: 20240702, end: 20250728
  3. AMLODIPINE [Concomitant]
     Active Substance: AMLODIPINE BESYLATE
     Route: 048
     Dates: start: 202501
  4. Tramadol 25mg [Concomitant]
     Route: 048
     Dates: start: 202504
  5. Loxoprofen 60mg [Concomitant]
     Route: 048
     Dates: start: 202504
  6. Rebamipide 100mg [Concomitant]
     Dates: start: 202504
  7. ESOMEPRAZOLE20mg [Concomitant]
     Route: 048
     Dates: start: 202505
  8. PREDNISOLONE [Concomitant]
     Active Substance: PREDNISOLONE
     Dates: start: 202505
  9. LEVOTHYROXINE [Concomitant]
     Active Substance: LEVOTHYROXINE
     Route: 048
     Dates: start: 202408

REACTIONS (1)
  - Diabetic ketoacidosis [Recovered/Resolved]

NARRATIVE: CASE EVENT DATE: 20250704
